FAERS Safety Report 5105487-7 (Version None)
Quarter: 2006Q3

REPORT INFORMATION
  Report Type: 
  Country: None (occurrence: None)
  Receive Date: 20060731
  Receipt Date: 20060403
  Transmission Date: 20061208
  Serious: Yes (Hospitalization)
  Sender: FDA-Public Use
  Company Number: US-JNJFOC-20060300962

PATIENT
  Age: 49 Year
  Sex: Female
  Weight: 66.2252 kg

DRUGS (29)
  1. RISPERDAL [Suspect]
     Indication: DRUG USE FOR UNKNOWN INDICATION
     Dosage: SEE IMAGE
     Route: 048
     Dates: start: 20060215, end: 20060216
  2. RISPERDAL [Suspect]
     Indication: DRUG USE FOR UNKNOWN INDICATION
     Dosage: SEE IMAGE
     Route: 048
     Dates: start: 20060216, end: 20060217
  3. RISPERDAL [Suspect]
     Indication: DRUG USE FOR UNKNOWN INDICATION
     Dosage: SEE IMAGE
     Route: 048
     Dates: start: 20060217, end: 20060219
  4. RISPERDAL [Suspect]
     Indication: DRUG USE FOR UNKNOWN INDICATION
     Dosage: SEE IMAGE
     Route: 048
     Dates: start: 20060219, end: 20060219
  5. RISPERDAL [Suspect]
     Indication: DRUG USE FOR UNKNOWN INDICATION
     Dosage: SEE IMAGE
     Route: 048
     Dates: start: 20060220, end: 20060221
  6. RISPERDAL [Suspect]
     Indication: DRUG USE FOR UNKNOWN INDICATION
     Dosage: SEE IMAGE
     Route: 048
     Dates: start: 20060301, end: 20060303
  7. RISPERDAL [Suspect]
     Indication: DRUG USE FOR UNKNOWN INDICATION
     Dosage: SEE IMAGE
     Route: 048
     Dates: start: 20060226
  8. HUMALOG INSULIN (INSULIN LISPRO) [Concomitant]
  9. IMITREX [Concomitant]
  10. TRAZODONE HCL [Concomitant]
  11. ARTHROTEC [Concomitant]
  12. ALLEGRA [Concomitant]
  13. QUININE SULFATE [Concomitant]
  14. FLONASE [Concomitant]
  15. ACIPHEX [Concomitant]
  16. SINEMET CR (SINEMET) [Concomitant]
  17. NYSTATIN [Concomitant]
  18. ZOCOR [Concomitant]
  19. TYLENOL W/ CODEINE NO. 3 [Concomitant]
  20. FLORINEF ACETATE (FLUDROCORTISONE ACETATE) [Concomitant]
  21. ZELNORM [Concomitant]
  22. LEVOXYL [Concomitant]
  23. REGLAN [Concomitant]
  24. SOMA [Concomitant]
  25. ZOLOFT [Concomitant]
  26. TOPAMAX [Concomitant]
  27. NEURONTIN [Concomitant]
  28. BUSPAR [Concomitant]
  29. SEROQUEL [Concomitant]

REACTIONS (2)
  - DIABETIC KETOACIDOSIS [None]
  - HYPERGLYCAEMIA [None]
